FAERS Safety Report 18528788 (Version 1)
Quarter: 2020Q4

REPORT INFORMATION
  Report Type: Other
  Country: DK (occurrence: DK)
  Receive Date: 20201120
  Receipt Date: 20201120
  Transmission Date: 20210114
  Serious: Yes (Hospitalization)
  Sender: FDA-Public Use
  Company Number: DK-STRIDES ARCOLAB LIMITED-2020SP014219

PATIENT
  Age: 73 Year
  Sex: Male

DRUGS (4)
  1. VANCOMYCIN [Suspect]
     Active Substance: VANCOMYCIN
     Indication: CLOSTRIDIAL INFECTION
     Dosage: UNK, TREATED SEVERAL TIMES IN 2020, STRENGTH 125 MG
     Route: 048
     Dates: start: 20200131
  2. METOPROLOL GEA [Concomitant]
     Active Substance: METOPROLOL
     Indication: HYPERTENSION
     Dosage: 50 MILLIGRAM, PER DAY, STRENGTH 100 MG
     Route: 048
     Dates: start: 20191210
  3. FOLSYRE ORIFARM [Concomitant]
     Indication: VITAMIN SUPPLEMENTATION
     Dosage: 5 MILLIGRAM, ONCE A WEEK, STRENGTH 5 MG
     Route: 048
     Dates: start: 20190715
  4. FURIX [FUROSEMIDE] [Concomitant]
     Active Substance: FUROSEMIDE
     Indication: DIURETIC THERAPY
     Dosage: 250 MILLIGRAM, PER DAY, STRENGTH 250 MG
     Route: 048
     Dates: start: 20190728

REACTIONS (2)
  - Chest discomfort [Unknown]
  - Dyspnoea [Not Recovered/Not Resolved]

NARRATIVE: CASE EVENT DATE: 20200813
